FAERS Safety Report 20580241 (Version 1)
Quarter: 2022Q1

REPORT INFORMATION
  Report Type: Spontaneous
  Country: US (occurrence: US)
  Receive Date: 20220310
  Receipt Date: 20220310
  Transmission Date: 20220423
  Serious: No
  Sender: FDA-Public Use
  Company Number: US-HORIZON THERAPEUTICS-HZN-2021-007877

PATIENT
  Sex: Female

DRUGS (6)
  1. PENNSAID [Suspect]
     Active Substance: DICLOFENAC SODIUM
     Indication: Carpal tunnel syndrome
     Dosage: UNK
     Route: 065
  2. PENNSAID [Suspect]
     Active Substance: DICLOFENAC SODIUM
     Indication: Arthritis
  3. DICLOFENAC [Concomitant]
     Active Substance: DICLOFENAC
     Indication: Carpal tunnel syndrome
     Dosage: UNK, GEL
     Route: 065
  4. DICLOFENAC [Concomitant]
     Active Substance: DICLOFENAC
     Indication: Arthritis
  5. GABAPENTIN [Concomitant]
     Active Substance: GABAPENTIN
     Indication: Carpal tunnel syndrome
     Dosage: UNK
     Route: 065
  6. GABAPENTIN [Concomitant]
     Active Substance: GABAPENTIN
     Indication: Arthritis

REACTIONS (1)
  - Drug ineffective for unapproved indication [Unknown]
